FAERS Safety Report 16570182 (Version 1)
Quarter: 2019Q3

REPORT INFORMATION
  Report Type: Spontaneous
  Country: US (occurrence: US)
  Receive Date: 20190715
  Receipt Date: 20190715
  Transmission Date: 20191004
  Serious: No
  Sender: FDA-Public Use
  Company Number: US-TEVA-2019-US-1076327

PATIENT
  Sex: Female

DRUGS (1)
  1. NORETHINDRONE W/ETHINYLESTRADIOL [Suspect]
     Active Substance: ETHINYL ESTRADIOL\NORETHINDRONE
     Indication: PRODUCT USED FOR UNKNOWN INDICATION
     Route: 065

REACTIONS (5)
  - Sleep disorder [Unknown]
  - Product substitution issue [Unknown]
  - Anxiety [Unknown]
  - Dysmenorrhoea [Unknown]
  - Depression [Unknown]
